FAERS Safety Report 18302058 (Version 1)
Quarter: 2020Q3

REPORT INFORMATION
  Report Type: Spontaneous
  Country: US (occurrence: US)
  Receive Date: 20200923
  Receipt Date: 20200923
  Transmission Date: 20201103
  Serious: Yes (Other)
  Sender: FDA-Public Use
  Company Number: US-009507513-2009USA007687

PATIENT
  Age: 2 Year

DRUGS (1)
  1. KEYTRUDA [Suspect]
     Active Substance: PEMBROLIZUMAB
     Dosage: UNK

REACTIONS (1)
  - Seizure [Unknown]
